FAERS Safety Report 22098893 (Version 3)
Quarter: 2023Q1

REPORT INFORMATION
  Report Type: Report from Study
  Country: JP (occurrence: JP)
  Receive Date: 20230315
  Receipt Date: 20230330
  Transmission Date: 20230417
  Serious: Yes (Death)
  Sender: FDA-Public Use
  Company Number: JP-PFIZER INC-2019122562

PATIENT
  Age: 74 Year
  Sex: Female
  Weight: 41.9 kg

DRUGS (5)
  1. LORBRENA [Suspect]
     Active Substance: LORLATINIB
     Indication: Non-small cell lung cancer
     Dosage: 100 MG, DAILY
     Route: 048
     Dates: start: 20190227, end: 20190301
  2. LORBRENA [Suspect]
     Active Substance: LORLATINIB
     Dosage: 100 MG/DAY, ALTERNATE DAY
     Dates: start: 20190304
  3. LORBRENA [Suspect]
     Active Substance: LORLATINIB
     Dosage: 100 MG/DAY, 2-DAYS ON AND 1-DAY OFF
     Dates: start: 20190401
  4. LORBRENA [Suspect]
     Active Substance: LORLATINIB
     Dosage: 100 MG/DAY, ONCE DAILY FOR 3 CONSECUTIVE DAYS FOLLOWED BY 1 DAY OFF TREATMENT
     Dates: start: 20190415, end: 20190425
  5. AMLODIPINE BESYLATE [Concomitant]
     Active Substance: AMLODIPINE BESYLATE
     Indication: Hypertension
     Dosage: UNK
     Route: 048
     Dates: end: 20190425

REACTIONS (4)
  - Neoplasm progression [Fatal]
  - Delirium [Recovered/Resolved]
  - Hallucination [Recovered/Resolved]
  - Hallucination, visual [Recovered/Resolved]

NARRATIVE: CASE EVENT DATE: 20190228
